FAERS Safety Report 4489378-0 (Version None)
Quarter: 2004Q4

REPORT INFORMATION
  Report Type: 
  Country: None (occurrence: None)
  Receive Date: 20041026
  Receipt Date: 20041012
  Transmission Date: 20050328
  Serious: Yes (Disabling)
  Sender: FDA-Public Use
  Company Number: 04H-028-0273298-00

PATIENT
  Age: 3 Year
  Sex: Female
  Weight: 15.8759 kg

DRUGS (10)
  1. PHENOBARBITAL SODIUM 100MG CAP [Suspect]
     Indication: CONVULSION
     Dosage: SEE IMAGE
     Route: 042
     Dates: start: 20040825, end: 20040826
  2. PHENOBARBITAL SODIUM 100MG CAP [Suspect]
     Indication: CONVULSION
     Dosage: SEE IMAGE
     Route: 042
     Dates: start: 20040807, end: 20040911
  3. PHENOBARBITAL SODIUM 100MG CAP [Suspect]
     Indication: CONVULSION
     Dosage: SEE IMAGE
     Route: 042
     Dates: start: 20040827
  4. PYRIDOXINE HYDROCHLORIDE INJECTION [Suspect]
     Indication: CONVULSION
     Dosage: SEE IMAGE
     Route: 042
     Dates: start: 20040821, end: 20040821
  5. PYRIDOXINE HYDROCHLORIDE INJECTION [Suspect]
     Indication: VITAMIN B6 DEFICIENCY
     Dosage: SEE IMAGE
     Route: 042
     Dates: start: 20040821, end: 20040821
  6. PYRIDOXINE HYDROCHLORIDE INJECTION [Suspect]
     Indication: CONVULSION
     Dosage: SEE IMAGE
     Route: 042
     Dates: start: 20040824
  7. PYRIDOXINE HYDROCHLORIDE INJECTION [Suspect]
     Indication: VITAMIN B6 DEFICIENCY
     Dosage: SEE IMAGE
     Route: 042
     Dates: start: 20040824
  8. RANITIDINE [Concomitant]
  9. .... [Concomitant]
  10. VALPROIC ACID [Concomitant]

REACTIONS (6)
  - CONDITION AGGRAVATED [None]
  - CONVULSION [None]
  - DRUG EFFECT DECREASED [None]
  - PARALYSIS [None]
  - PNEUMONIA ASPIRATION [None]
  - SEDATION [None]
